FAERS Safety Report 8860211 (Version 1)
Quarter: 2012Q4

REPORT INFORMATION
  Report Type: 
  Country: US (occurrence: US)
  Receive Date: 20121025
  Receipt Date: 20121025
  Transmission Date: 20130627
  Serious: Yes (Disabling)
  Sender: FDA-Public Use
  Company Number: US-ABBOTT-12P-163-0995722-00

PATIENT
  Sex: Male
  Weight: 128.48 kg

DRUGS (9)
  1. NIASPAN (COATED) [Suspect]
     Indication: BLOOD CHOLESTEROL
  2. TRILIPIX [Suspect]
     Indication: BLOOD CHOLESTEROL
     Dosage: daily
  3. LIPITOR [Suspect]
     Indication: BLOOD CHOLESTEROL ABNORMAL
  4. LISINOPRIL [Concomitant]
     Indication: HYPERTENSION
     Dosage: Daily
  5. LISINOPRIL [Concomitant]
  6. LEVOTHYROXINE [Concomitant]
     Indication: THYROID DISORDER
     Dosage: daily
  7. METFORMIN [Concomitant]
     Indication: DIABETES MELLITUS
  8. GLIMEPIRIDE [Concomitant]
     Indication: DIABETES MELLITUS
  9. INSULINE LISPRO (HUMALOG) [Concomitant]
     Indication: DIABETES MELLITUS
     Dosage: 7 units am, 40 units afternoon, 20 units pm

REACTIONS (5)
  - Pain in extremity [Unknown]
  - Oedema peripheral [Unknown]
  - Foot fracture [Unknown]
  - Neuropathy peripheral [Unknown]
  - Blood cholesterol increased [Unknown]
